FAERS Safety Report 23682704 (Version 6)
Quarter: 2024Q3

REPORT INFORMATION
  Report Type: Spontaneous
  Country: CA (occurrence: CA)
  Receive Date: 20240328
  Receipt Date: 20240716
  Transmission Date: 20241017
  Serious: Yes (Hospitalization, Disabling, Other)
  Sender: CELLTRION
  Company Number: CA-CELLTRION INC.-2023CA021557

PATIENT

DRUGS (11)
  1. INFLECTRA [Suspect]
     Active Substance: INFLIXIMAB-DYYB
     Indication: Uveitis
     Dosage: 800 MG, INDUCTION WEEK 0, 2, 6 THEN MAINTENANCE EVERY 6 WEEKS
     Route: 042
     Dates: start: 20220810
  2. INFLECTRA [Suspect]
     Active Substance: INFLIXIMAB-DYYB
     Dosage: 800 MG, INDUCTION WEEK 0, 2, 6 THEN MAINTENANCE EVERY 6 WEEKS
     Route: 042
     Dates: start: 20230921
  3. INFLECTRA [Suspect]
     Active Substance: INFLIXIMAB-DYYB
     Dosage: 800 MG, AFTER 11 WEEKS AND 1 DAY
     Route: 042
     Dates: start: 20231208
  4. INFLECTRA [Suspect]
     Active Substance: INFLIXIMAB-DYYB
     Dosage: 800 MG, AFTER 8 WEEKS AND 6 DAYS (PRESCRIBED EVERY 6 WEEKS)
     Route: 042
     Dates: start: 20240208
  5. INFLECTRA [Suspect]
     Active Substance: INFLIXIMAB-DYYB
     Dosage: 800 MG, INDUCTION WEEK 0, 2, 6 THEN MAINTENANCE EVERY 6 WEEKS
     Route: 042
     Dates: start: 20240321
  6. INFLECTRA [Suspect]
     Active Substance: INFLIXIMAB-DYYB
     Dosage: 10 MG/KG, 900MG AFTER 3 WEEKS AND 5 DAYS (PRESCRIBED EVERY 4 WEEKS)
     Route: 042
     Dates: start: 20240416
  7. INFLECTRA [Suspect]
     Active Substance: INFLIXIMAB-DYYB
     Dosage: 900 MG (6 WEEKS AND 2 DAYS)
     Route: 042
     Dates: start: 20240529
  8. INFLECTRA [Suspect]
     Active Substance: INFLIXIMAB-DYYB
     Dosage: 900 MG, EVERY 4 WEEKS (10 MG/KG, EVERY 4 WEEK) FIXED DOSE: 900MG
     Route: 042
     Dates: start: 20240625
  9. CALCIUM\CHOLECALCIFEROL [Concomitant]
     Active Substance: CALCIUM\CHOLECALCIFEROL
     Dosage: 1 DF, DOSAGE NOT AVAILABLE
     Route: 065
  10. CITALOPRAM [Concomitant]
     Active Substance: CITALOPRAM\CITALOPRAM HYDROBROMIDE
     Dosage: 20 MG
     Route: 048
  11. CORTISONE [Concomitant]
     Active Substance: CORTISONE
     Dosage: 30 MG
     Route: 048

REACTIONS (12)
  - Visual impairment [Recovering/Resolving]
  - Condition aggravated [Not Recovered/Not Resolved]
  - Pneumonia pneumococcal [Not Recovered/Not Resolved]
  - Pyrexia [Not Recovered/Not Resolved]
  - Immunosuppression [Unknown]
  - Eye infection fungal [Recovering/Resolving]
  - Hypoaesthesia [Not Recovered/Not Resolved]
  - Limb discomfort [Not Recovered/Not Resolved]
  - Paraesthesia [Not Recovered/Not Resolved]
  - Paraesthesia oral [Not Recovered/Not Resolved]
  - Influenza [Not Recovered/Not Resolved]
  - Off label use [Unknown]

NARRATIVE: CASE EVENT DATE: 20231001
